FAERS Safety Report 8075452-9 (Version None)
Quarter: 2012Q1

REPORT INFORMATION
  Report Type: 
  Country: None (occurrence: None)
  Receive Date: 20120127
  Receipt Date: 20120119
  Transmission Date: 20120608
  Serious: Yes (Hospitalization, Other)
  Sender: FDA-Public Use
  Company Number: US-ABBOTT-12P-163-0895278-00

PATIENT
  Sex: Female
  Weight: 69.916 kg

DRUGS (7)
  1. HUMIRA [Suspect]
     Indication: RHEUMATOID ARTHRITIS
     Dates: start: 20060101, end: 20100101
  2. CELEBREX [Concomitant]
     Indication: RHEUMATOID ARTHRITIS
  3. XANAX [Concomitant]
     Indication: ANXIETY
  4. HUMIRA [Suspect]
     Dates: start: 20100101
  5. OMEPRAZOLE [Concomitant]
     Indication: DYSPEPSIA
  6. PLAQUENIL [Concomitant]
     Indication: RHEUMATOID ARTHRITIS
  7. VICODIN [Concomitant]
     Indication: ARTHRALGIA

REACTIONS (14)
  - EXCESSIVE SKIN [None]
  - DYSPNOEA [None]
  - PARANASAL SINUS HYPERSECRETION [None]
  - FATIGUE [None]
  - CARDIAC DISORDER [None]
  - FEELING ABNORMAL [None]
  - GASTRIC BYPASS [None]
  - LOCALISED INFECTION [None]
  - COUGH [None]
  - RHEUMATOID LUNG [None]
  - WEIGHT DECREASED [None]
  - TOTAL LUNG CAPACITY DECREASED [None]
  - INSOMNIA [None]
  - CHOKING SENSATION [None]
